FAERS Safety Report 8223022-1 (Version None)
Quarter: 2012Q1

REPORT INFORMATION
  Report Type: 
  Country: None (occurrence: None)
  Receive Date: 20120320
  Receipt Date: 20120315
  Transmission Date: 20120608
  Serious: Yes (Death, Other)
  Sender: FDA-Public Use
  Company Number: US-ASTRAZENECA-2012SE18116

PATIENT
  Age: 56 Year
  Sex: Male

DRUGS (1)
  1. NEXIUM [Suspect]
     Route: 048

REACTIONS (5)
  - HEPATITIS C [None]
  - RESPIRATORY TRACT ULCERATION [None]
  - NERVOUS SYSTEM DISORDER [None]
  - ABASIA [None]
  - MENTAL IMPAIRMENT [None]
